FAERS Safety Report 10245218 (Version 3)
Quarter: 2014Q4

REPORT INFORMATION
  Report Type: Spontaneous
  Country: US (occurrence: US)
  Receive Date: 20140618
  Receipt Date: 20141107
  Transmission Date: 20150528
  Serious: Yes (Hospitalization, Disabling, Other)
  Sender: FDA-Public Use
  Company Number: US-009507513-1406USA008343

PATIENT
  Sex: Female
  Weight: 77.55 kg

DRUGS (5)
  1. CALCIUM (UNSPECIFIED) (+) VITAMIN D (UNSPECIFIED) [Concomitant]
     Active Substance: CALCIUM CARBONATE\VITAMIN D
     Dosage: 600 MG, QD
     Dates: start: 1994
  2. FOSAMAX [Suspect]
     Active Substance: ALENDRONATE SODIUM
     Indication: OSTEOPENIA
     Dosage: 70 MG, UNK
     Route: 048
     Dates: start: 20021011, end: 20040519
  3. VITAMINS (UNSPECIFIED) [Concomitant]
     Active Substance: VITAMINS
     Dosage: 2800 IU, QD
     Dates: start: 1994
  4. BONIVA [Suspect]
     Active Substance: IBANDRONATE SODIUM
     Indication: OSTEOPENIA
     Dosage: 150 MG, UNK
     Route: 048
     Dates: start: 20040414, end: 20120501
  5. HORMONES (UNSPECIFIED) [Concomitant]
     Active Substance: UNSPECIFIED INGREDIENT
     Dosage: UNK
     Dates: start: 1982, end: 2010

REACTIONS (30)
  - Stress fracture [Not Recovered/Not Resolved]
  - Pleural effusion [Unknown]
  - Bursitis [Unknown]
  - Haemorrhagic anaemia [Unknown]
  - Ecchymosis [Unknown]
  - Iliotibial band syndrome [Unknown]
  - Blood calcium decreased [Unknown]
  - Intramedullary rod insertion [Unknown]
  - Hypoxia [Unknown]
  - Adverse event [Unknown]
  - Osteoporosis [Unknown]
  - Osteoporosis [Not Recovered/Not Resolved]
  - Tibia fracture [Unknown]
  - Atelectasis [Unknown]
  - Pain [Unknown]
  - Escherichia urinary tract infection [Unknown]
  - Arthralgia [Unknown]
  - Low turnover osteopathy [Not Recovered/Not Resolved]
  - Cholecystectomy [Unknown]
  - Hypertension [Unknown]
  - Abdominal pain [Unknown]
  - Depression [Unknown]
  - Anxiety [Unknown]
  - Heart rate abnormal [Unknown]
  - Viral infection [Unknown]
  - Carpal tunnel syndrome [Unknown]
  - Femur fracture [Recovered/Resolved]
  - Insomnia [Unknown]
  - Joint swelling [Unknown]
  - Femur fracture [Not Recovered/Not Resolved]

NARRATIVE: CASE EVENT DATE: 2003
